FAERS Safety Report 8436589-5 (Version None)
Quarter: 2012Q2

REPORT INFORMATION
  Report Type: 
  Country: None (occurrence: None)
  Receive Date: 20120614
  Receipt Date: 20120605
  Transmission Date: 20120825
  Serious: No
  Sender: FDA-Public Use
  Company Number: US-B.I. PHARMACEUTICALS,INC./RIDGEFIELD-2012-BP-13031BP

PATIENT
  Sex: Female

DRUGS (8)
  1. SYNTHROID [Concomitant]
     Indication: HYPOTHYROIDISM
     Dosage: 0.112 MCG
     Route: 048
  2. SUDAFED 12 HOUR [Concomitant]
     Dosage: 15 MG
     Route: 048
  3. CITRACAL [Concomitant]
     Indication: SUPPLEMENTATION THERAPY
  4. SIMVASTATIN [Concomitant]
     Indication: BLOOD CHOLESTEROL INCREASED
     Dosage: 20 MG
     Route: 048
  5. MULTI-VITAMIN [Concomitant]
     Indication: SUPPLEMENTATION THERAPY
  6. ZANTAC [Suspect]
     Indication: DYSPEPSIA
     Dosage: 300 MG
     Route: 048
     Dates: start: 20120601, end: 20120601
  7. FISH OIL [Concomitant]
     Indication: SUPPLEMENTATION THERAPY
     Dosage: 2400 MG
     Route: 048
  8. VALIUM [Concomitant]
     Indication: ANXIETY
     Dosage: 10 MG
     Route: 048

REACTIONS (1)
  - DRUG INEFFECTIVE [None]
